FAERS Safety Report 4753374-6 (Version None)
Quarter: 2005Q3

REPORT INFORMATION
  Report Type: 
  Country: None (occurrence: None)
  Receive Date: 20050824
  Receipt Date: 20050815
  Transmission Date: 20060218
  Serious: Yes (Hospitalization)
  Sender: FDA-Public Use
  Company Number: 2005-08-1075

PATIENT
  Age: 57 Year
  Sex: Male

DRUGS (2)
  1. PEG-INTRON [Suspect]
     Dosage: SUBCUTANEOUS
     Route: 058
     Dates: start: 20050501
  2. REBETOL [Suspect]
     Dosage: ORAL
     Route: 048
     Dates: start: 20050501

REACTIONS (2)
  - CONVULSION [None]
  - SYNCOPE VASOVAGAL [None]
